FAERS Safety Report 7793649-X (Version None)
Quarter: 2011Q4

REPORT INFORMATION
  Report Type: 
  Country: None (occurrence: None)
  Receive Date: 20111003
  Receipt Date: 20110927
  Transmission Date: 20120403
  Serious: Yes (Other)
  Sender: FDA-Public Use
  Company Number: US-PFIZER INC-2011230719

PATIENT
  Sex: Female
  Weight: 90.7 kg

DRUGS (11)
  1. ZOLPIDEM [Concomitant]
     Dosage: UNK
  2. AMITRIPTYLINE [Concomitant]
     Dosage: UNK
  3. TAPENTADOL [Concomitant]
     Dosage: UNK
  4. LYRICA [Suspect]
     Indication: TEMPOROMANDIBULAR JOINT SYNDROME
  5. FISH OIL [Concomitant]
     Dosage: UNK
  6. LYRICA [Suspect]
     Indication: FIBROMYALGIA
  7. LYRICA [Suspect]
     Indication: FATIGUE
  8. CALCIUM [Concomitant]
     Dosage: UNK
  9. MAGNESIUM [Concomitant]
     Dosage: UNK
  10. LYRICA [Suspect]
     Indication: RESTLESS LEGS SYNDROME
     Dosage: 50 MG, 1X/DAY
     Route: 048
     Dates: start: 20090201, end: 20110801
  11. CLONAZEPAM [Concomitant]
     Dosage: UNK

REACTIONS (6)
  - SUICIDAL IDEATION [None]
  - BLOOD CHOLESTEROL INCREASED [None]
  - DEPRESSION [None]
  - BALANCE DISORDER [None]
  - FALL [None]
  - WEIGHT INCREASED [None]
